FAERS Safety Report 5930629-0 (Version None)
Quarter: 2008Q4

REPORT INFORMATION
  Report Type: 
  Country: None (occurrence: None)
  Receive Date: 20081027
  Receipt Date: 20081017
  Transmission Date: 20090506
  Serious: Yes (Death)
  Sender: FDA-Public Use
  Company Number: AU-JNJFOC-20081004269

PATIENT
  Sex: Male
  Weight: 140 kg

DRUGS (4)
  1. RISPERIDONE [Suspect]
     Indication: SCHIZOPHRENIA
     Route: 065
  2. CLOZAPINE [Suspect]
     Indication: SCHIZOPHRENIA
     Route: 048
  3. BENZHEXOL [Suspect]
     Indication: PARKINSONISM
     Dosage: AT NIGHT
     Route: 065
  4. ASPIRIN [Concomitant]
     Indication: POLYCYTHAEMIA
     Route: 048

REACTIONS (1)
  - MYOCARDIAL INFARCTION [None]
